FAERS Safety Report 24878687 (Version 4)
Quarter: 2025Q1

REPORT INFORMATION
  Report Type: Report from Study
  Country: JP (occurrence: JP)
  Receive Date: 20250123
  Receipt Date: 20250226
  Transmission Date: 20250408
  Serious: No
  Sender: UCB
  Company Number: JP-UCBJ-CD202500606UCBPHAPROD

PATIENT
  Age: 2 Year
  Sex: Male
  Weight: 12.1 kg

DRUGS (16)
  1. FENFLURAMINE HYDROCHLORIDE [Suspect]
     Active Substance: FENFLURAMINE HYDROCHLORIDE
     Indication: Severe myoclonic epilepsy of infancy
     Dosage: 0.05 MILLIGRAM/KILOGRAM, 2X/DAY (BID)
     Route: 048
     Dates: start: 20240116, end: 20240917
  2. FENFLURAMINE HYDROCHLORIDE [Suspect]
     Active Substance: FENFLURAMINE HYDROCHLORIDE
     Dosage: 0.1 MILLIGRAM/KILOGRAM, 2X/DAY (BID)
     Route: 048
     Dates: start: 20240917
  3. FENFLURAMINE HYDROCHLORIDE [Suspect]
     Active Substance: FENFLURAMINE HYDROCHLORIDE
     Dosage: 0.12 MILLIGRAM/KILOGRAM, 2X/DAY (BID)
     Route: 048
  4. FENFLURAMINE HYDROCHLORIDE [Suspect]
     Active Substance: FENFLURAMINE HYDROCHLORIDE
     Dosage: 0.08 MILLIGRAM/KILOGRAM, 2X/DAY (BID)
     Route: 048
  5. FENFLURAMINE HYDROCHLORIDE [Suspect]
     Active Substance: FENFLURAMINE HYDROCHLORIDE
     Dosage: 0.16 MILLIGRAM/KILOGRAM, 2X/DAY (BID)
     Route: 048
  6. FENFLURAMINE HYDROCHLORIDE [Suspect]
     Active Substance: FENFLURAMINE HYDROCHLORIDE
     Dosage: 0.2 MILLIGRAM/KILOGRAM, 2X/DAY (BID)
     Route: 048
  7. VALPROATE SODIUM [Suspect]
     Active Substance: VALPROATE SODIUM
     Indication: Severe myoclonic epilepsy of infancy
     Route: 048
  8. VALPROATE SODIUM [Suspect]
     Active Substance: VALPROATE SODIUM
     Route: 048
  9. VALPROATE SODIUM [Suspect]
     Active Substance: VALPROATE SODIUM
     Route: 048
  10. VALPROATE SODIUM [Suspect]
     Active Substance: VALPROATE SODIUM
     Route: 048
  11. VALPROATE SODIUM [Suspect]
     Active Substance: VALPROATE SODIUM
     Route: 048
  12. VALPROATE SODIUM [Suspect]
     Active Substance: VALPROATE SODIUM
     Route: 048
  13. CLOBAZAM [Concomitant]
     Active Substance: CLOBAZAM
     Indication: Product used for unknown indication
     Route: 048
  14. STIRIPENTOL [Concomitant]
     Active Substance: STIRIPENTOL
     Indication: Product used for unknown indication
     Route: 048
  15. MYSTAN [Concomitant]
     Active Substance: CLOBAZAM
     Indication: Severe myoclonic epilepsy of infancy
     Route: 048
  16. DIACOMIT [Concomitant]
     Active Substance: STIRIPENTOL
     Indication: Severe myoclonic epilepsy of infancy
     Route: 048

REACTIONS (3)
  - Diarrhoea [Recovering/Resolving]
  - Prescribed underdose [Unknown]
  - Off label use [Unknown]

NARRATIVE: CASE EVENT DATE: 20240220
